FAERS Safety Report 6951277-X (Version None)
Quarter: 2010Q3

REPORT INFORMATION
  Report Type: 
  Country: None (occurrence: None)
  Receive Date: 20100828
  Receipt Date: 20100322
  Transmission Date: 20110219
  Serious: No
  Sender: FDA-Public Use
  Company Number: US-ABBOTT-10P-163-0633748-00

PATIENT
  Sex: Male
  Weight: 99.88 kg

DRUGS (5)
  1. NIASPAN [Suspect]
     Indication: BLOOD TRIGLYCERIDES INCREASED
     Dosage: AT BEDTIME
     Dates: start: 20100316
  2. NIASPAN [Suspect]
     Indication: HIGH DENSITY LIPOPROTEIN DECREASED
  3. ASPIRIN [Concomitant]
     Indication: PRODUCT USED FOR UNKNOWN INDICATION
     Dosage: MORNING
  4. BLOOD PRESSURE MEDICATION [Concomitant]
     Indication: BLOOD PRESSURE
  5. THYROID MEDICATION [Concomitant]
     Indication: THYROID DISORDER

REACTIONS (1)
  - FLUSHING [None]
